FAERS Safety Report 8264752-5 (Version None)
Quarter: 2012Q2

REPORT INFORMATION
  Report Type: 
  Country: None (occurrence: None)
  Receive Date: 20120406
  Receipt Date: 20120329
  Transmission Date: 20120825
  Serious: Yes (Death, Hospitalization)
  Sender: FDA-Public Use
  Company Number: CA-JNJFOC-20120400361

PATIENT
  Sex: Female
  Weight: 60 kg

DRUGS (9)
  1. FOSAMAX [Concomitant]
     Route: 065
  2. SYNTHROID [Concomitant]
     Route: 065
  3. LIPITOR [Concomitant]
     Route: 065
  4. LASIX [Concomitant]
     Route: 065
  5. GLUCOPHAGE [Concomitant]
     Route: 065
  6. ALTACE [Concomitant]
     Route: 065
  7. REMICADE [Suspect]
     Indication: RHEUMATOID ARTHRITIS
     Route: 042
     Dates: start: 20000612, end: 20111201
  8. CALCIUM AND VIT D [Concomitant]
     Route: 065
  9. NORVASC [Concomitant]
     Route: 065

REACTIONS (8)
  - RENAL FAILURE [None]
  - PLEURISY [None]
  - DYSPNOEA [None]
  - FATIGUE [None]
  - DEATH [None]
  - OEDEMA PERIPHERAL [None]
  - HYPERTENSION [None]
  - WOUND [None]
